FAERS Safety Report 22190121 (Version 3)
Quarter: 2023Q2

REPORT INFORMATION
  Report Type: Report from Study
  Country: US (occurrence: US)
  Receive Date: 20230410
  Receipt Date: 20230413
  Transmission Date: 20230721
  Serious: Yes (Other)
  Sender: FDA-Public Use
  Company Number: US-ABBVIE-4720308

PATIENT
  Age: 48 Year
  Sex: Female
  Weight: 65.77 kg

DRUGS (5)
  1. RINVOQ [Suspect]
     Active Substance: UPADACITINIB
     Indication: Rheumatoid arthritis
     Dosage: 30 MILLIGRAM
     Route: 048
     Dates: start: 202202, end: 20230310
  2. RINVOQ [Suspect]
     Active Substance: UPADACITINIB
     Indication: Rheumatoid arthritis
     Dosage: START DATE MAR 2023
     Route: 048
  3. METHOTREXATE [Concomitant]
     Active Substance: METHOTREXATE
     Indication: Rheumatoid arthritis
     Dates: start: 202210
  4. TRAMADOL [Concomitant]
     Active Substance: TRAMADOL
     Indication: Pain
  5. GABAPENTIN [Concomitant]
     Active Substance: GABAPENTIN
     Indication: Neuralgia

REACTIONS (7)
  - Surgery [Unknown]
  - Hernia [Recovered/Resolved]
  - Unevaluable event [Unknown]
  - Immunodeficiency [Recovering/Resolving]
  - Drug ineffective [Not Recovered/Not Resolved]
  - Pain [Recovered/Resolved]
  - Rheumatoid arthritis [Not Recovered/Not Resolved]

NARRATIVE: CASE EVENT DATE: 20221001
